FAERS Safety Report 14199624 (Version 2)
Quarter: 2019Q1

REPORT INFORMATION
  Report Type: Report from Study
  Country: US (occurrence: US)
  Receive Date: 20171117
  Receipt Date: 20190226
  Transmission Date: 20190417
  Serious: Yes (Death, Life-Threatening, Hospitalization)
  Sender: FDA-Public Use
  Company Number: US-ASTRAZENECA-2017SF16898

PATIENT
  Age: 879 Month
  Sex: Female
  Weight: 63.5 kg

DRUGS (2)
  1. AZD2171 [Suspect]
     Active Substance: CEDIRANIB
     Indication: MALIGNANT PERITONEAL NEOPLASM
     Route: 048
     Dates: start: 20170901
  2. AZD2281 [Suspect]
     Active Substance: OLAPARIB
     Indication: MALIGNANT PERITONEAL NEOPLASM
     Route: 048
     Dates: start: 20170901

REACTIONS (4)
  - Cerebrovascular accident [Fatal]
  - Acidosis [Unknown]
  - Jejunal perforation [Unknown]
  - Sepsis [Unknown]

NARRATIVE: CASE EVENT DATE: 20171002
